FAERS Safety Report 8552634-0 (Version None)
Quarter: 2012Q3

REPORT INFORMATION
  Report Type: 
  Country: None (occurrence: None)
  Receive Date: 20120731
  Receipt Date: 20120724
  Transmission Date: 20120928
  Serious: No
  Sender: FDA-Public Use
  Company Number: US-PFIZER INC-2012147845

PATIENT
  Sex: Female
  Weight: 62.585 kg

DRUGS (3)
  1. PREMARIN [Suspect]
     Indication: HORMONE REPLACEMENT THERAPY
     Dosage: UNK
     Dates: start: 19890101, end: 20110701
  2. PREMARIN [Suspect]
     Dosage: 0.625 MG, UNK
     Route: 048
     Dates: start: 20120411
  3. PREMARIN [Suspect]
     Dosage: 0.45 MG, UNK
     Dates: start: 20120401, end: 20120401

REACTIONS (1)
  - DERMATITIS CONTACT [None]
